FAERS Safety Report 9124951 (Version 3)
Quarter: 2013Q2

REPORT INFORMATION
  Report Type: Spontaneous
  Country: US (occurrence: US)
  Receive Date: 20130121
  Receipt Date: 20130524
  Transmission Date: 20140414
  Serious: No
  Sender: FDA-Public Use
  Company Number: US-009507513-1301USA008819

PATIENT
  Age: 56 Year
  Sex: Male
  Weight: 88.44 kg

DRUGS (19)
  1. VICTRELIS [Suspect]
     Indication: CHRONIC HEPATITIS C
     Dosage: 200 MG, TID
     Route: 048
  2. PEGINTRON [Suspect]
     Indication: CHRONIC HEPATITIS C
     Route: 058
  3. RIBAVIRIN [Suspect]
     Indication: CHRONIC HEPATITIS C
     Route: 048
  4. KLONOPIN [Concomitant]
     Route: 048
  5. AMBIEN [Concomitant]
     Route: 048
  6. BENADRYL [Concomitant]
     Route: 048
  7. TRAZODONE HYDROCHLORIDE [Concomitant]
     Route: 048
  8. PRAVASTATIN SODIUM [Concomitant]
     Route: 048
  9. QUINAPRIL HYDROCHLORIDE [Concomitant]
     Route: 048
  10. FLONASE [Concomitant]
  11. ADVAIR [Concomitant]
     Route: 055
  12. NEXIUM [Concomitant]
     Route: 048
  13. VITAMIN D (UNSPECIFIED) [Concomitant]
     Route: 048
  14. VITAMINS (UNSPECIFIED) [Concomitant]
     Route: 048
  15. HOMATROPINE METHYLBROMIDE (+) HYDROCODONE BITARTRATE [Concomitant]
     Route: 048
  16. MELATONIN [Concomitant]
     Route: 048
  17. ASPIRIN [Concomitant]
     Route: 048
  18. HYDROCORT [Concomitant]
  19. AMBIEN [Concomitant]
     Route: 048

REACTIONS (6)
  - Sinus headache [Unknown]
  - Influenza like illness [Unknown]
  - Dysgeusia [Unknown]
  - Rash [Unknown]
  - Stomatitis [Unknown]
  - Vision blurred [Unknown]
